FAERS Safety Report 6626662-6 (Version None)
Quarter: 2010Q1

REPORT INFORMATION
  Report Type: 
  Country: None (occurrence: None)
  Receive Date: 20100305
  Receipt Date: 20100226
  Transmission Date: 20100710
  Serious: Yes (Other)
  Sender: FDA-Public Use
  Company Number: SPV1-2010-00346

PATIENT
  Sex: 0

DRUGS (1)
  1. MESALAMINE [Suspect]
     Indication: DRUG USE FOR UNKNOWN INDICATION
     Dosage: 4.8 G,

REACTIONS (1)
  - PANCYTOPENIA [None]
